FAERS Safety Report 5799360-9 (Version None)
Quarter: 2008Q3

REPORT INFORMATION
  Report Type: 
  Country: None (occurrence: None)
  Receive Date: 20080703
  Receipt Date: 20080623
  Transmission Date: 20090109
  Serious: Yes (Other)
  Sender: FDA-Public Use
  Company Number: US-PFIZER INC-2008053357

PATIENT
  Age: 76 Year
  Sex: Male

DRUGS (8)
  1. CELEBREX [Suspect]
     Indication: ARTHRALGIA
     Route: 048
     Dates: start: 20080620, end: 20080622
  2. PREDNISOLONE [Concomitant]
  3. QUINIDINE HCL [Concomitant]
  4. WARFARIN SODIUM [Concomitant]
  5. ALTACE [Concomitant]
  6. DIGOXIN [Concomitant]
  7. LASIX [Concomitant]
  8. POTASSIUM CHLORIDE [Concomitant]

REACTIONS (3)
  - DYSPNOEA [None]
  - EYE SWELLING [None]
  - LYMPHADENOPATHY [None]
